FAERS Safety Report 4946444-0 (Version None)
Quarter: 2006Q1

REPORT INFORMATION
  Report Type: 
  Country: None (occurrence: None)
  Receive Date: 20060317
  Receipt Date: 20060216
  Transmission Date: 20060701
  Serious: Yes (Hospitalization)
  Sender: FDA-Public Use
  Company Number: 2006AP00854

PATIENT
  Age: 31294 Day
  Sex: Male

DRUGS (4)
  1. CASODEX [Suspect]
     Indication: PROSTATE CANCER
     Route: 048
     Dates: start: 20051207, end: 20060201
  2. LEUPLIN [Suspect]
     Indication: PROSTATE CANCER
     Route: 058
     Dates: start: 20050608, end: 20060201
  3. URSO [Concomitant]
     Indication: HEPATIC FUNCTION ABNORMAL
     Route: 048
     Dates: start: 20050803, end: 20060209
  4. PROSTAL [Concomitant]
     Indication: PROSTATE CANCER
     Route: 048
     Dates: start: 20050525, end: 20051206

REACTIONS (2)
  - HEPATIC FUNCTION ABNORMAL [None]
  - PANCREATITIS ACUTE [None]
